FAERS Safety Report 18723688 (Version 1)
Quarter: 2021Q1

REPORT INFORMATION
  Report Type: Spontaneous
  Country: US (occurrence: US)
  Receive Date: 20210111
  Receipt Date: 20210111
  Transmission Date: 20210419
  Serious: No
  Sender: FDA-Public Use
  Company Number: US-GW PHARMA-202101USGW00003

PATIENT

DRUGS (5)
  1. CLONAZEPAM. [Suspect]
     Active Substance: CLONAZEPAM
     Indication: ANXIETY
     Dosage: UNK
     Route: 065
  2. EPIDIOLEX [Suspect]
     Active Substance: CANNABIDIOL
     Indication: LENNOX-GASTAUT SYNDROME
     Dosage: 700 MILLIGRAM, BID
     Route: 048
     Dates: start: 20190718
  3. CLONAZEPAM. [Suspect]
     Active Substance: CLONAZEPAM
     Dosage: DECREASED DOSE
     Route: 065
     Dates: start: 202101
  4. CLOBAZAM. [Suspect]
     Active Substance: CLOBAZAM
     Dosage: INCREASED DOSE
     Route: 065
     Dates: start: 202101
  5. CLOBAZAM. [Suspect]
     Active Substance: CLOBAZAM
     Indication: ANXIETY
     Dosage: UNK
     Route: 065

REACTIONS (1)
  - Anxiety [Not Recovered/Not Resolved]

NARRATIVE: CASE EVENT DATE: 20210101
